FAERS Safety Report 4694157-5 (Version None)
Quarter: 2005Q2

REPORT INFORMATION
  Report Type: 
  Country: None (occurrence: None)
  Receive Date: 20050617
  Receipt Date: 20050617
  Transmission Date: 20051028
  Serious: Yes (Hospitalization)
  Sender: FDA-Public Use
  Company Number: None

PATIENT
  Sex: Male
  Weight: 83.8 kg

DRUGS (8)
  1. IMATINIB MESILATE 100 MG CAPSULES, NOVARTIS [Suspect]
     Indication: GLIOBLASTOMA MULTIFORME
     Dosage: 400 MG, PO BID X 8 DAYS
     Route: 048
     Dates: start: 20050314, end: 20050517
  2. TEMOZOLOMIDE, SCHERING-PLOUGH [Suspect]
     Indication: GLIOBLASTOMA MULTIFORME
     Dosage: 400 MG PO DAILY X 5 DAYS
     Route: 048
     Dates: start: 20050317, end: 20050517
  3. LAMICTAL [Concomitant]
  4. DECADRON [Concomitant]
  5. M.V.I. [Concomitant]
  6. FESO4 [Concomitant]
  7. RITALIN [Concomitant]
  8. CALCIUM SUPPLEMENTS [Concomitant]

REACTIONS (2)
  - CYST [None]
  - HEADACHE [None]
